FAERS Safety Report 8681675 (Version 4)
Quarter: 2012Q4

REPORT INFORMATION
  Report Type: 
  Country: CN (occurrence: CN)
  Receive Date: 20120725
  Receipt Date: 20121001
  Transmission Date: 20130627
  Serious: Yes (Hospitalization)
  Sender: FDA-Public Use
  Company Number: CN-ASTELLAS-2012US006350

PATIENT
  Age: 72 Year
  Sex: Female
  Weight: 60 kg

DRUGS (1)
  1. TARCEVA [Suspect]
     Indication: NON-SMALL CELL LUNG CANCER
     Dosage: 150 mg, UID/QD
     Route: 048
     Dates: start: 201203, end: 201206

REACTIONS (4)
  - Hydrothorax [Recovering/Resolving]
  - Pericardial effusion [Unknown]
  - Hair growth abnormal [Recovered/Resolved]
  - Rash [Recovered/Resolved]
